FAERS Safety Report 7952585-6 (Version None)
Quarter: 2011Q4

REPORT INFORMATION
  Report Type: 
  Country: None (occurrence: None)
  Receive Date: 20111201
  Receipt Date: 20111125
  Transmission Date: 20120403
  Serious: Yes (Death)
  Sender: FDA-Public Use
  Company Number: US-CELGENEUS-163-21880-11101512

PATIENT
  Sex: Male
  Weight: 140.74 kg

DRUGS (10)
  1. REVLIMID [Suspect]
     Dosage: 15 MILLIGRAM
     Route: 048
     Dates: start: 20110824, end: 20110911
  2. REVLIMID [Suspect]
     Indication: MULTIPLE MYELOMA
     Dosage: 10 MILLIGRAM
     Route: 048
     Dates: start: 20110822
  3. ASPIRIN [Concomitant]
     Dosage: 81 MILLIGRAM
     Route: 048
     Dates: start: 20100101
  4. GARLIC PILL [Concomitant]
     Route: 048
     Dates: start: 20080101
  5. ATENOLOL [Concomitant]
     Dosage: 100 MILLIGRAM
     Route: 048
     Dates: start: 20030101
  6. ACTOS [Concomitant]
     Dosage: 30 MILLIGRAM
     Route: 048
     Dates: start: 20100101
  7. VITAMIN B-12 [Concomitant]
     Dosage: 1000 MILLIGRAM
     Route: 048
     Dates: start: 20110101
  8. ENLAPRIL [Concomitant]
     Dosage: 10 MILLIGRAM
     Route: 048
     Dates: start: 20100822
  9. GLYBURIDE [Concomitant]
     Dosage: 3 MILLIGRAM
     Route: 048
     Dates: start: 20050101
  10. CALCIUM / D [Concomitant]
     Dosage: 600/4.00
     Route: 048
     Dates: start: 20110101

REACTIONS (1)
  - MYOCARDIAL INFARCTION [None]
